FAERS Safety Report 8096194-X (Version None)
Quarter: 2012Q1

REPORT INFORMATION
  Report Type: 
  Country: None (occurrence: None)
  Receive Date: 20120129
  Receipt Date: 20111209
  Transmission Date: 20120608
  Serious: No
  Sender: FDA-Public Use
  Company Number: US-ABBOTT-11P-163-0882307-00

PATIENT
  Age: 31 Year
  Sex: Female

DRUGS (3)
  1. HUMIRA [Suspect]
     Indication: CROHN'S DISEASE
     Dates: start: 20111101
  2. PROZAC [Concomitant]
     Indication: ANXIETY
  3. LORAZEPAM [Concomitant]
     Indication: ANXIETY

REACTIONS (5)
  - ABDOMINAL PAIN UPPER [None]
  - FLATULENCE [None]
  - ANXIETY [None]
  - INJECTION SITE PAIN [None]
  - DIARRHOEA [None]
